FAERS Safety Report 11366553 (Version 1)
Quarter: 2015Q3

REPORT INFORMATION
  Report Type: Spontaneous
  Country: US (occurrence: US)
  Receive Date: 20150811
  Receipt Date: 20150811
  Transmission Date: 20151125
  Serious: No
  Sender: FDA-Public Use
  Company Number: US-ELI_LILLY_AND_COMPANY-US201304000440

PATIENT

DRUGS (1)
  1. AXIRON [Suspect]
     Active Substance: TESTOSTERONE
     Indication: BLOOD TESTOSTERONE DECREASED
     Dosage: UNK
     Dates: start: 20130220

REACTIONS (13)
  - Arthralgia [Unknown]
  - Pollakiuria [Unknown]
  - Application site erythema [Unknown]
  - Pain in extremity [Unknown]
  - Confusional state [Unknown]
  - Feeling hot [Unknown]
  - Anger [Unknown]
  - Depression [Unknown]
  - Decreased appetite [Unknown]
  - Anxiety [Unknown]
  - Headache [Unknown]
  - Hair growth abnormal [Unknown]
  - Dizziness [Unknown]
